FAERS Safety Report 11580513 (Version 1)
Quarter: 2015Q3

REPORT INFORMATION
  Report Type: Spontaneous
  Country: US (occurrence: US)
  Receive Date: 20150916
  Receipt Date: 20150916
  Transmission Date: 20151125
  Serious: No
  Sender: FDA-Public Use
  Company Number: US-ELI_LILLY_AND_COMPANY-US200804001984

PATIENT
  Age: 82 Year
  Sex: Female

DRUGS (9)
  1. COZAAR [Concomitant]
     Active Substance: LOSARTAN POTASSIUM
  2. FORTEO [Suspect]
     Active Substance: TERIPARATIDE
     Dosage: UNK, UNK
     Dates: start: 20080406, end: 20080424
  3. ALTACE [Concomitant]
     Active Substance: RAMIPRIL
  4. ZAROXOLYN [Concomitant]
     Active Substance: METOLAZONE
     Dosage: UNK, UNK
     Dates: end: 200804
  5. ZAROXOLYN [Concomitant]
     Active Substance: METOLAZONE
     Dosage: 10 MG, UNK
     Dates: start: 200804
  6. POTASSIUM [Concomitant]
     Active Substance: POTASSIUM
     Dosage: 9 D/F, DAILY (1/D)
     Route: 048
     Dates: start: 200804
  7. LASIX [Concomitant]
     Active Substance: FUROSEMIDE
     Dosage: UNK, UNK
  8. LASIX [Concomitant]
     Active Substance: FUROSEMIDE
     Dosage: 40 MG, UNK
     Dates: start: 200804
  9. POTASSIUM [Concomitant]
     Active Substance: POTASSIUM
     Dosage: 8 D/F, DAILY (1/D)
     Route: 048
     Dates: end: 200804

REACTIONS (13)
  - Fatigue [Not Recovered/Not Resolved]
  - Peripheral swelling [Not Recovered/Not Resolved]
  - Injection site bruising [Not Recovered/Not Resolved]
  - Dizziness [Not Recovered/Not Resolved]
  - Injection site haemorrhage [Recovered/Resolved]
  - Malaise [Not Recovered/Not Resolved]
  - Palpitations [Unknown]
  - Tremor [Not Recovered/Not Resolved]
  - Blood electrolytes decreased [Unknown]
  - Erythema [Not Recovered/Not Resolved]
  - Injection site discomfort [Recovered/Resolved]
  - Injection site pain [Not Recovered/Not Resolved]
  - Blood pressure systolic decreased [Not Recovered/Not Resolved]

NARRATIVE: CASE EVENT DATE: 200804
